FAERS Safety Report 5688551-3 (Version None)
Quarter: 2008Q1

REPORT INFORMATION
  Report Type: 
  Country: None (occurrence: None)
  Receive Date: 20080331
  Receipt Date: 20080319
  Transmission Date: 20080703
  Serious: Yes (Death)
  Sender: FDA-Public Use
  Company Number: GB-TEVA-169104ISR

PATIENT
  Age: 73 Year
  Sex: Female

DRUGS (5)
  1. PREDNISOLONE [Suspect]
     Dates: start: 20000101, end: 20010101
  2. PREDNISOLONE [Suspect]
  3. METHOTREXATE [Suspect]
  4. CYCLOSPORINE [Concomitant]
  5. LEFLUNOMIDE [Concomitant]
     Dates: start: 19980101

REACTIONS (1)
  - PNEUMOCYSTIS JIROVECI PNEUMONIA [None]
